FAERS Safety Report 7243352-X (Version None)
Quarter: 2011Q1

REPORT INFORMATION
  Report Type: 
  Country: None (occurrence: None)
  Receive Date: 20110125
  Receipt Date: 20110119
  Transmission Date: 20110831
  Serious: Yes (Life-Threatening, Hospitalization)
  Sender: FDA-Public Use
  Company Number: US-ELI_LILLY_AND_COMPANY-US201012000051

PATIENT
  Sex: Male
  Weight: 52.16 kg

DRUGS (15)
  1. NICODERM [Concomitant]
     Dosage: UNK, DAILY (1/D)
  2. ADVAIR [Concomitant]
     Dosage: UNK, 2/D
  3. COMBIVENT [Concomitant]
     Dosage: 15 G, EVERY 6 HRS
  4. MIRALAX [Concomitant]
     Dosage: UNK, AS NEEDED
     Dates: start: 20101127
  5. OXYGEN [Concomitant]
     Dosage: 2 LITER, AS NEEDED
  6. AVELOX [Concomitant]
     Dosage: 400 MG, DAILY (1/D) FOR 7 DAYS
  7. EMEND [Concomitant]
     Indication: PROPHYLAXIS
     Dosage: 80 MG, OTHER
  8. ZOFRAN [Concomitant]
     Indication: NAUSEA
     Dosage: 8 MG, AS NEEDED
  9. DECADRON [Concomitant]
     Dosage: 4 MG, OTHER
  10. IBUPROFEN [Concomitant]
     Dosage: 400 MG, UNK
  11. OMEPRAZOLE [Concomitant]
     Dosage: 40 MG, DAILY (1/D)
  12. GEMCITABINE HYDROCHLORIDE [Suspect]
     Indication: NON-SMALL CELL LUNG CANCER
     Dosage: 2012 MG, UNK
     Dates: start: 20101119, end: 20101126
  13. CISPLATIN [Suspect]
     Indication: NON-SMALL CELL LUNG CANCER
     Dosage: 120 MG, UNK
     Dates: start: 20101119, end: 20101119
  14. COMPAZINE [Concomitant]
     Indication: NAUSEA
     Dosage: 10 MG, AS NEEDED
  15. MS IR [Concomitant]
     Indication: PAIN
     Dosage: 15 MG, AS NEEDED

REACTIONS (3)
  - PNEUMONIA [None]
  - THROMBOCYTOPENIA [None]
  - NEUTROPENIA [None]
